FAERS Safety Report 9482580 (Version 1)
Quarter: 2013Q3

REPORT INFORMATION
  Report Type: Spontaneous
  Country: US (occurrence: US)
  Receive Date: 20130828
  Receipt Date: 20130828
  Transmission Date: 20140515
  Serious: No
  Sender: FDA-Public Use
  Company Number: US-009507513-1308USA006511

PATIENT
  Age: 70 Year
  Sex: Male

DRUGS (1)
  1. INTEGRILIN [Suspect]
     Dosage: UNK
     Dates: start: 2009

REACTIONS (1)
  - Thrombocytopenia [Recovered/Resolved]
